FAERS Safety Report 6181516-7 (Version None)
Quarter: 2009Q2

REPORT INFORMATION
  Report Type: 
  Country: None (occurrence: None)
  Receive Date: 20090506
  Receipt Date: 20090427
  Transmission Date: 20091009
  Serious: Yes (Life-Threatening, Hospitalization, Other)
  Sender: FDA-Public Use
  Company Number: DE-ABBOTT-09P-062-0559565-00

PATIENT
  Age: 47 Year
  Sex: Female
  Weight: 76 kg

DRUGS (4)
  1. REDUCTIL 15MG [Suspect]
     Indication: OBESITY
     Route: 048
     Dates: start: 20090209, end: 20090218
  2. METAMIZOLE [Concomitant]
     Indication: PAIN
     Dosage: 500 MG DAILY
     Route: 048
     Dates: start: 20090206, end: 20090216
  3. TETRAZEPAM [Concomitant]
     Indication: PAIN
     Route: 048
     Dates: start: 20090206, end: 20090216
  4. TETRAZEPAM [Concomitant]
     Indication: HYPOTONIA

REACTIONS (3)
  - ACQUIRED PORPHYRIA [None]
  - BILE DUCT STONE [None]
  - POLYP [None]
